FAERS Safety Report 4960359-3 (Version None)
Quarter: 2006Q2

REPORT INFORMATION
  Report Type: 
  Country: None (occurrence: None)
  Receive Date: 20060403
  Receipt Date: 20060328
  Transmission Date: 20061013
  Serious: Yes (Death, Other)
  Sender: FDA-Public Use
  Company Number: PHNR2006AU00619

PATIENT
  Age: 72 Year
  Sex: Female

DRUGS (7)
  1. RITALIN [Suspect]
     Dates: start: 19970225
  2. ENALAPRIL MALEATE [Concomitant]
     Indication: ESSENTIAL HYPERTENSION
  3. ENALAPRIL MALEATE [Concomitant]
     Dosage: 20MG DAILY
     Dates: start: 19960101
  4. AMLODIPINE [Concomitant]
     Indication: ESSENTIAL HYPERTENSION
     Dosage: 5 MG DAILY
     Dates: start: 19970201
  5. MAXOLON [Concomitant]
     Indication: VOMITING
     Dosage: 30 MG DAILY
     Dates: start: 19960901
  6. ASPIRIN [Concomitant]
     Dosage: 150 MG DAILY
     Dates: start: 19950101
  7. SIMVASTATIN [Concomitant]
     Dosage: 10 MG DAILY
     Dates: start: 19950101

REACTIONS (4)
  - NAUSEA [None]
  - RENAL FAILURE ACUTE [None]
  - SUDDEN DEATH [None]
  - VOMITING [None]
